FAERS Safety Report 6754805-2 (Version None)
Quarter: 2010Q2

REPORT INFORMATION
  Report Type: 
  Country: None (occurrence: None)
  Receive Date: 20100601
  Receipt Date: 20100518
  Transmission Date: 20101027
  Serious: Yes (Hospitalization)
  Sender: FDA-Public Use
  Company Number: 056-20484-09100985

PATIENT
  Age: 30 Year
  Sex: Female

DRUGS (5)
  1. INNOHEP [Suspect]
     Indication: PULMONARY EMBOLISM
     Dosage: 1 INJECTION AT 17H 30 PM, SUBCUTANEOUS
     Route: 058
     Dates: start: 20090920, end: 20090920
  2. TRAMADOL HCL [Suspect]
     Indication: DRUG USE FOR UNKNOWN INDICATION
     Dosage: 1 INJECTION AT 16H00 PM, INTRAVENOUS
     Route: 042
     Dates: start: 20090920, end: 20090920
  3. ONDANSETRON HCL [Suspect]
     Indication: NAUSEA
     Dosage: 2 INJECTIONS AT 17H30 - 17H45 PM, INTRAVENOUS
     Route: 042
     Dates: start: 20090920, end: 20090920
  4. PERFALGAN (PARACETAMOL) (10 MILLIGRAM, INJECTION FOR INFUSION) [Suspect]
     Indication: PAIN
     Dosage: 3 INJECTIONS AT 16H00, 16H15 AND 17H30 PM, INTRAVENOUS
     Route: 042
     Dates: start: 20090920, end: 20090920
  5. RINGER LAVOISIER (POTASSIUM CHLORIDE, CALCIUM CHLORIDE ANHYDROUS) [Concomitant]

REACTIONS (5)
  - HYPOAESTHESIA ORAL [None]
  - SPEECH DISORDER [None]
  - SWOLLEN TONGUE [None]
  - TONGUE OEDEMA [None]
  - TONGUE PARALYSIS [None]
